FAERS Safety Report 7025250-X (Version None)
Quarter: 2010Q4

REPORT INFORMATION
  Report Type: 
  Country: None (occurrence: None)
  Receive Date: 20101001
  Receipt Date: 20100923
  Transmission Date: 20110411
  Serious: Yes (Disabling)
  Sender: FDA-Public Use
  Company Number: SE-ABBOTT-10P-150-0672814-00

PATIENT
  Sex: Female

DRUGS (4)
  1. HUMIRA [Suspect]
     Indication: RHEUMATOID ARTHRITIS
     Route: 058
  2. METHOTREXATE [Concomitant]
     Indication: RHEUMATOID ARTHRITIS
  3. PREDNISOLON [Concomitant]
     Indication: RHEUMATOID ARTHRITIS
  4. UNKNOWN ANTI-HYPERTENSIVE DRUG [Concomitant]
     Indication: HYPERTENSION

REACTIONS (1)
  - DEAFNESS NEUROSENSORY [None]
